FAERS Safety Report 13097177 (Version 1)
Quarter: 2017Q1

REPORT INFORMATION
  Report Type: Spontaneous
  Country: CA (occurrence: US)
  Receive Date: 20170107
  Receipt Date: 20170107
  Transmission Date: 20170428
  Serious: Yes (Other)
  Sender: FDA-Public Use
  Company Number: None

PATIENT
  Age: 74 Year
  Sex: Male
  Weight: 92.25 kg

DRUGS (4)
  1. ZYCLARA [Suspect]
     Active Substance: IMIQUIMOD
     Indication: THERAPEUTIC SKIN CARE TOPICAL
     Dosage: ?          QUANTITY:1 SPRAY(S);?
     Route: 061
     Dates: start: 20161219, end: 20161231
  2. METFORMIN FC [Concomitant]
  3. VITAMIN B12 [Concomitant]
     Active Substance: CYANOCOBALAMIN
  4. RAMIPRIL. [Concomitant]
     Active Substance: RAMIPRIL

REACTIONS (5)
  - Erythema [None]
  - Application site erythema [None]
  - Application site pruritus [None]
  - Skin lesion [None]
  - Application site pain [None]

NARRATIVE: CASE EVENT DATE: 20161231
